FAERS Safety Report 24264272 (Version 1)
Quarter: 2024Q3

REPORT INFORMATION
  Report Type: Spontaneous
  Country: GB (occurrence: GB)
  Receive Date: 20240829
  Receipt Date: 20240829
  Transmission Date: 20241016
  Serious: Yes (Hospitalization, Other)
  Sender: TEVA
  Company Number: GB-MHRA-TPP17913182C18684086YC1723553408273

PATIENT
  Age: 74 Year
  Sex: Male
  Weight: 84 kg

DRUGS (15)
  1. CLARITHROMYCIN [Suspect]
     Active Substance: CLARITHROMYCIN
     Route: 065
     Dates: start: 20240730
  2. ACETAMINOPHEN\CODEINE PHOSPHATE [Concomitant]
     Active Substance: ACETAMINOPHEN\CODEINE PHOSPHATE
     Indication: Analgesic therapy
     Dosage: ONE TO TWO TABLETS TO BE TAKEN EVERY FOUR TO SIX HOURS WHEN REQUIRED. MAXIMUM 8 TABLETS IN 24 HOU...
     Dates: start: 20240730, end: 20240811
  3. ALENDRONIC ACID [Concomitant]
     Active Substance: ALENDRONIC ACID
     Dosage: WHILE TAKING PREDNISOLONE, TPP YC - PLEASE RECLASSIFY
     Dates: start: 20240806
  4. SULFASALAZINE [Concomitant]
     Active Substance: SULFASALAZINE
     Dosage: TPP YC - PLEASE RECLASSIFY
     Dates: start: 20240709
  5. AZITHROMYCIN [Concomitant]
     Active Substance: AZITHROMYCIN
     Indication: Bronchiectasis
     Dosage: AMBER 2 FOR BRONCHIECTASIS, TPP YC - PLEASE RECLASSIFY
     Dates: start: 20220310
  6. SERETIDE [Concomitant]
     Active Substance: FLUTICASONE PROPIONATE\SALMETEROL XINAFOATE
     Dosage: PUFFS, 12 HOURS APART, TPP YC - PLEASE RECLASSIFY
     Dates: start: 20220310
  7. CLOTRIMAZOLE [Concomitant]
     Active Substance: CLOTRIMAZOLE
     Dosage: APPLY TWICE DAILY IN THE GROIN FOR UPT TO 2WEEKS, TPP YC - PLEASE RECLASSIFY
     Dates: start: 20240619, end: 20240717
  8. DOXYCYCLINE [Concomitant]
     Active Substance: DOXYCYCLINE\DOXYCYCLINE HYCLATE
     Dosage: TWO NOW THEN ONE DAILY, TPP YC - PLEASE RECLASSIFY
     Dates: start: 20240722, end: 20240729
  9. PREDNISOLONE [Concomitant]
     Active Substance: PREDNISOLONE
     Dosage: AS PER PMR DOCUMENT, TPP YC - PLEASE RECLASSIFY
     Dates: start: 20240806
  10. ALBUTEROL [Concomitant]
     Active Substance: ALBUTEROL
     Dosage: TAKE ONE OR TWO PUFFS WHEN REQUIRED FOR BREATHL..., TPP YC - PLEASE RECLASSIFY
     Dates: start: 20240809
  11. NASONEX [Concomitant]
     Active Substance: MOMETASONE FUROATE
     Dosage: TPP YC - PLEASE RECLASSIFY
     Dates: start: 20240125
  12. ETORICOXIB [Concomitant]
     Active Substance: ETORICOXIB
     Dosage: TOTAL 90MG, TPP YC - PLEASE RECLASSIFY
     Dates: start: 20240716, end: 20240813
  13. ATORVASTATIN [Concomitant]
     Active Substance: ATORVASTATIN
     Dosage: TPP YC - PLEASE RECLASSIFY
     Dates: start: 20220310
  14. CARBOCYSTEINE [Concomitant]
     Active Substance: CARBOCYSTEINE
     Dosage: USE AS DIRECTED BY RESPIRATORY CONSULTANT, TPP YC - PLEASE RECLASSIFY
     Dates: start: 20220310
  15. LANSOPRAZOLE [Concomitant]
     Active Substance: LANSOPRAZOLE
     Dosage: TPP YC - PLEASE RECLASSIFY
     Dates: start: 20220310

REACTIONS (2)
  - Rash [Recovered/Resolved]
  - Infection [Unknown]

NARRATIVE: CASE EVENT DATE: 20240812
